FAERS Safety Report 22524720 (Version 1)
Quarter: 2023Q2

REPORT INFORMATION
  Report Type: Spontaneous
  Country: US (occurrence: US)
  Receive Date: 20230606
  Receipt Date: 20230606
  Transmission Date: 20230722
  Serious: No
  Sender: FDA-Public Use
  Company Number: US-drreddys-SPO/USA/23/0165170

PATIENT
  Age: 18 Year

DRUGS (1)
  1. ZENATANE [Suspect]
     Active Substance: ISOTRETINOIN
     Indication: Product used for unknown indication
     Dosage: RMA ISSUE DATE; 30 MARCH 2023 11:07:48 AM, 20 FEBRUARY 2023 03:59:43 PM, 20 JANUARY 2023 11:38:20 AM

REACTIONS (1)
  - Adverse drug reaction [Unknown]
